FAERS Safety Report 7441846-5 (Version None)
Quarter: 2011Q2

REPORT INFORMATION
  Report Type: 
  Country: None (occurrence: None)
  Receive Date: 20110423
  Receipt Date: 20110423
  Transmission Date: 20111010
  Serious: Yes (Hospitalization)
  Sender: FDA-Public Use
  Company Number: None

PATIENT
  Age: 78 Year
  Sex: Male
  Weight: 79.5 kg

DRUGS (3)
  1. ENOXAPARIN [Suspect]
     Indication: DEEP VEIN THROMBOSIS
     Dosage: 80 MG BID SQ
     Route: 058
     Dates: start: 20110218, end: 20110228
  2. ENOXAPARIN [Suspect]
     Indication: PULMONARY EMBOLISM
     Dosage: 80 MG BID SQ
     Route: 058
     Dates: start: 20110218, end: 20110228
  3. ENOXAPARIN [Suspect]
     Indication: FACTOR V LEIDEN MUTATION
     Dosage: 80 MG BID SQ
     Route: 058
     Dates: start: 20110218, end: 20110228

REACTIONS (1)
  - THROMBOCYTOPENIA [None]
